FAERS Safety Report 6831191-0 (Version None)
Quarter: 2010Q3

REPORT INFORMATION
  Report Type: 
  Country: None (occurrence: None)
  Receive Date: 20100712
  Receipt Date: 20100706
  Transmission Date: 20110219
  Serious: Yes (Hospitalization)
  Sender: FDA-Public Use
  Company Number: GB-PFIZER INC-2010084353

PATIENT
  Age: 42 Year
  Sex: Female

DRUGS (3)
  1. METHYLPREDNISOLONE [Suspect]
     Indication: MULTIPLE SCLEROSIS RELAPSE
     Dosage: 500 MG, UNK
     Route: 048
     Dates: start: 20100615, end: 20100618
  2. OMEPRAZOLE [Suspect]
     Dosage: 20 MG, UNK
     Route: 048
     Dates: start: 20100615
  3. ZOPICLONE [Suspect]
     Indication: INSOMNIA
     Dosage: 7.5 MG, UNK
     Route: 048
     Dates: start: 20100615

REACTIONS (3)
  - LIP SWELLING [None]
  - SWOLLEN TONGUE [None]
  - URTICARIA [None]
